FAERS Safety Report 5853355-5 (Version None)
Quarter: 2008Q3

REPORT INFORMATION
  Report Type: 
  Country: None (occurrence: None)
  Receive Date: 20080821
  Receipt Date: 20080816
  Transmission Date: 20090109
  Serious: Yes (Other)
  Sender: FDA-Public Use
  Company Number: US-PFIZER INC-2007093049

PATIENT
  Sex: Male
  Weight: 90.7 kg

DRUGS (4)
  1. CHANTIX [Suspect]
     Indication: SMOKING CESSATION THERAPY
  2. CLONAZEPAM [Concomitant]
  3. ZYPREXA [Concomitant]
  4. DICLOFENAC [Concomitant]

REACTIONS (3)
  - KNEE ARTHROPLASTY [None]
  - MANIA [None]
  - SELF INJURIOUS BEHAVIOUR [None]
